FAERS Safety Report 13546988 (Version 3)
Quarter: 2017Q3

REPORT INFORMATION
  Report Type: Spontaneous
  Country: US (occurrence: US)
  Receive Date: 20170515
  Receipt Date: 20170714
  Transmission Date: 20171127
  Serious: Yes (Other)
  Sender: FDA-Public Use
  Company Number: US-ALEXION-A201705043

PATIENT
  Age: 4 Year
  Sex: Male

DRUGS (2)
  1. SOLIRIS [Suspect]
     Active Substance: ECULIZUMAB
     Indication: HAEMOLYTIC URAEMIC SYNDROME
     Dosage: UNK
     Route: 042
  2. SOLIRIS [Suspect]
     Active Substance: ECULIZUMAB
     Dosage: UNK, MORE OFTEN THAN ONCE WEEKLY

REACTIONS (7)
  - Muscular weakness [Unknown]
  - Parvovirus B19 infection [Unknown]
  - Inappropriate schedule of drug administration [Not Recovered/Not Resolved]
  - Blood creatine phosphokinase increased [Unknown]
  - Muscle injury [Unknown]
  - Metabolic disorder [Unknown]
  - Urine output decreased [Recovering/Resolving]
